FAERS Safety Report 6158300-3 (Version None)
Quarter: 2009Q2

REPORT INFORMATION
  Report Type: 
  Country: None (occurrence: None)
  Receive Date: 20090417
  Receipt Date: 20070925
  Transmission Date: 20091009
  Serious: Yes (Hospitalization, Other)
  Sender: FDA-Public Use
  Company Number: US-ASTRAZENECA-2006UW20961

PATIENT
  Age: 15884 Day
  Sex: Female
  Weight: 108.4 kg

DRUGS (36)
  1. SEROQUEL [Suspect]
     Indication: DEPRESSION
     Route: 048
     Dates: start: 20030101, end: 20060101
  2. SEROQUEL [Suspect]
     Indication: BIPOLAR DISORDER
     Route: 048
     Dates: start: 20030101, end: 20060101
  3. SEROQUEL [Suspect]
     Dosage: 25-600 MG
     Route: 048
     Dates: start: 20000828
  4. SEROQUEL [Suspect]
     Dosage: 25-600 MG
     Route: 048
     Dates: start: 20000828
  5. ABILIFY [Concomitant]
     Dates: start: 20060101
  6. HALDOL [Concomitant]
     Dates: start: 20060101
  7. LAMICTAL [Concomitant]
  8. MIRTAZAPINE [Concomitant]
  9. CLONAZEPAM [Concomitant]
  10. DEPAKOTE [Concomitant]
  11. PREVACID [Concomitant]
  12. LASIX [Concomitant]
  13. ULTRAM [Concomitant]
  14. VISTARIL [Concomitant]
  15. NEURONTIN [Concomitant]
  16. SYNTHROID [Concomitant]
  17. PREMARIN [Concomitant]
  18. TOPROL-XL [Concomitant]
  19. TAGAMET [Concomitant]
  20. NITROGLYCERIN [Concomitant]
  21. PAXIL [Concomitant]
  22. CELEBREX [Concomitant]
  23. CLARITIN [Concomitant]
  24. KEPPRA [Concomitant]
  25. LEXAPRO [Concomitant]
  26. ASPIRIN [Concomitant]
  27. PRANDIN [Concomitant]
  28. GLUCOPHAGE XL [Concomitant]
  29. ALTACE [Concomitant]
  30. ACTOS [Concomitant]
  31. ATIVAN [Concomitant]
  32. ULTRACET [Concomitant]
  33. NOVOLOG [Concomitant]
  34. ZOCOR [Concomitant]
  35. PROPRANOLOL [Concomitant]
  36. ESTRADIOL [Concomitant]

REACTIONS (49)
  - ABDOMINAL PAIN [None]
  - ABDOMINAL PAIN UPPER [None]
  - ANAEMIA [None]
  - ANXIETY DISORDER [None]
  - ARTHRALGIA [None]
  - ASTHENIA [None]
  - BACK PAIN [None]
  - BIPOLAR DISORDER [None]
  - BREAST ABSCESS [None]
  - BREAST CELLULITIS [None]
  - CANDIDIASIS [None]
  - CELLULITIS [None]
  - CHEST PAIN [None]
  - CONTUSION [None]
  - DERMABRASION [None]
  - DIABETES MELLITUS [None]
  - DYSPEPSIA [None]
  - DYSPHAGIA [None]
  - DYSPNOEA [None]
  - EAR PAIN [None]
  - ECCHYMOSIS [None]
  - GASTROINTESTINAL HAEMORRHAGE [None]
  - GASTROOESOPHAGEAL REFLUX DISEASE [None]
  - HAEMATOCHEZIA [None]
  - HAEMORRHOIDS [None]
  - HYPERCAPNIA [None]
  - HYPERLIPIDAEMIA [None]
  - HYPOTHYROIDISM [None]
  - INSOMNIA [None]
  - MASTITIS [None]
  - MENTAL STATUS CHANGES [None]
  - MIGRAINE [None]
  - MYALGIA [None]
  - NAUSEA [None]
  - NEUROPATHY PERIPHERAL [None]
  - NON-CARDIAC CHEST PAIN [None]
  - OSTEOARTHRITIS [None]
  - OTITIS MEDIA ACUTE [None]
  - PHARYNGITIS [None]
  - PLATELET COUNT DECREASED [None]
  - RECTAL HAEMORRHAGE [None]
  - RENAL FAILURE [None]
  - RESTLESS LEGS SYNDROME [None]
  - SLEEP APNOEA SYNDROME [None]
  - SLEEP DISORDER [None]
  - SYNCOPE [None]
  - VAGINAL DISCHARGE [None]
  - VOMITING [None]
  - WEIGHT INCREASED [None]
